FAERS Safety Report 5084334-6 (Version None)
Quarter: 2006Q3

REPORT INFORMATION
  Report Type: 
  Country: None (occurrence: None)
  Receive Date: 20060817
  Receipt Date: 20060817
  Transmission Date: 20061208
  Serious: Yes (Life-Threatening, Hospitalization, Other)
  Sender: FDA-Public Use
  Company Number: None

PATIENT
  Age: 29 Year
  Sex: Male
  Weight: 86.1834 kg

DRUGS (1)
  1. XANAX [Suspect]
     Indication: ANXIETY
     Dosage: 2-3 MG DAILY PO
     Route: 048
     Dates: start: 20060403, end: 20060608

REACTIONS (2)
  - GRAND MAL CONVULSION [None]
  - JOINT DISLOCATION [None]
